FAERS Safety Report 17754301 (Version 1)
Quarter: 2020Q2

REPORT INFORMATION
  Report Type: Spontaneous
  Country: US (occurrence: US)
  Receive Date: 20200507
  Receipt Date: 20200507
  Transmission Date: 20200714
  Serious: Yes (Other)
  Sender: FDA-Public Use
  Company Number: US-TEVA-2020-US-1231394

PATIENT
  Sex: Male

DRUGS (1)
  1. ALPRAZOLAM TEVA [Suspect]
     Active Substance: ALPRAZOLAM
     Indication: ANXIETY
     Dosage: DOSE: 2-3 TABLET PER DAY
     Route: 065

REACTIONS (2)
  - Drug ineffective [Unknown]
  - Depression suicidal [Unknown]

NARRATIVE: CASE EVENT DATE: 202004
